FAERS Safety Report 12528982 (Version 1)
Quarter: 2016Q3

REPORT INFORMATION
  Report Type: Spontaneous
  Country: US (occurrence: US)
  Receive Date: 20160705
  Receipt Date: 20160705
  Transmission Date: 20161109
  Serious: No
  Sender: FDA-Public Use
  Company Number: US-ELI_LILLY_AND_COMPANY-US201607000301

PATIENT
  Age: 77 Year
  Sex: Female

DRUGS (2)
  1. HUMALOG MIX75/25 [Suspect]
     Active Substance: INSULIN LISPRO
     Indication: TYPE 2 DIABETES MELLITUS
     Dosage: UNK UNK, UNKNOWN
     Route: 065
  2. HUMALOG MIX75/25 [Suspect]
     Active Substance: INSULIN LISPRO
     Dosage: UNK UNK, UNKNOWN
     Route: 065

REACTIONS (7)
  - Epistaxis [Unknown]
  - Wrong drug administered [Unknown]
  - Injury associated with device [Unknown]
  - Eye swelling [Unknown]
  - Fall [Unknown]
  - Nasal injury [Unknown]
  - Haematoma [Unknown]

NARRATIVE: CASE EVENT DATE: 20160629
